FAERS Safety Report 9177851 (Version 1)
Quarter: 2012Q4

REPORT INFORMATION
  Report Type: 
  Country: US (occurrence: US)
  Receive Date: 20121015
  Receipt Date: 20121015
  Transmission Date: 20130627
  Serious: Yes (Other)
  Sender: FDA-Public Use
  Company Number: US-RB-045511-12

PATIENT
  Sex: Female

DRUGS (3)
  1. SUBUTEX [Suspect]
     Indication: DRUG DEPENDENCE
     Route: 060
     Dates: start: 20110817, end: 20120412
  2. SUBOXONE FILM [Suspect]
     Indication: DRUG DEPENDENCE
     Route: 060
     Dates: start: 20110630, end: 20110816
  3. SUBOXONE FILM [Suspect]
     Route: 060
     Dates: start: 20120413

REACTIONS (2)
  - Uterine mass [Recovered/Resolved]
  - Uterine haemorrhage [Recovered/Resolved]
